FAERS Safety Report 5420361-4 (Version None)
Quarter: 2007Q3

REPORT INFORMATION
  Report Type: 
  Country: None (occurrence: None)
  Receive Date: 20070816
  Receipt Date: 20070809
  Transmission Date: 20080115
  Serious: Yes (Hospitalization)
  Sender: FDA-Public Use
  Company Number: 163-20785-07060105

PATIENT
  Age: 33 Year
  Sex: Female

DRUGS (5)
  1. THALOMID [Suspect]
     Indication: MALIGNANT HISTIOCYTOSIS
     Dosage: 100 MG, 1 IN 1 D, ORAL, 100 MG, 1 IN MORNING AND 1 AT BEDTIME, ORAL
     Route: 048
     Dates: start: 20070601, end: 20070601
  2. THALOMID [Suspect]
     Indication: VULVAL CANCER
     Dosage: 100 MG, 1 IN 1 D, ORAL, 100 MG, 1 IN MORNING AND 1 AT BEDTIME, ORAL
     Route: 048
     Dates: start: 20070601, end: 20070601
  3. THALOMID [Suspect]
     Indication: MALIGNANT HISTIOCYTOSIS
     Dosage: 100 MG, 1 IN 1 D, ORAL, 100 MG, 1 IN MORNING AND 1 AT BEDTIME, ORAL
     Route: 048
     Dates: start: 20070201, end: 20070630
  4. THALOMID [Suspect]
     Indication: VULVAL CANCER
     Dosage: 100 MG, 1 IN 1 D, ORAL, 100 MG, 1 IN MORNING AND 1 AT BEDTIME, ORAL
     Route: 048
     Dates: start: 20070201, end: 20070630
  5. CLOBATASOL OINTMENT (CLOBATASOL) [Concomitant]

REACTIONS (4)
  - DYSARTHRIA [None]
  - HYPOAESTHESIA [None]
  - HYPOAESTHESIA FACIAL [None]
  - SOMNOLENCE [None]
